FAERS Safety Report 17582959 (Version 1)
Quarter: 2020Q1

REPORT INFORMATION
  Report Type: Spontaneous
  Country: US (occurrence: US)
  Receive Date: 20200325
  Receipt Date: 20200325
  Transmission Date: 20200409
  Serious: No
  Sender: FDA-Public Use
  Company Number: US-ENDO PHARMACEUTICALS INC-2019-107189

PATIENT
  Sex: Male

DRUGS (1)
  1. AVEED [Suspect]
     Active Substance: TESTOSTERONE UNDECANOATE
     Indication: TESTICULAR FAILURE
     Dosage: 3 ML, UNK
     Route: 030

REACTIONS (10)
  - Back pain [Unknown]
  - Sleep apnoea syndrome [Unknown]
  - Arthralgia [Unknown]
  - Hyperhidrosis [Unknown]
  - Depressed mood [Unknown]
  - Aggression [Unknown]
  - Headache [Unknown]
  - Urticaria [Unknown]
  - Asthma [Unknown]
  - Injection site pain [Unknown]
